FAERS Safety Report 21276735 (Version 1)
Quarter: 2022Q3

REPORT INFORMATION
  Report Type: Spontaneous
  Country: US (occurrence: US)
  Receive Date: 20220831
  Receipt Date: 20220831
  Transmission Date: 20221026
  Serious: No
  Sender: FDA-Public Use
  Company Number: US-ABBVIE-22K-163-4382893-00

PATIENT
  Sex: Female

DRUGS (1)
  1. HUMIRA [Suspect]
     Active Substance: ADALIMUMAB
     Indication: Osteoarthritis
     Route: 058

REACTIONS (5)
  - Off label use [Unknown]
  - Skin haemorrhage [Unknown]
  - Contusion [Unknown]
  - Erythema [Unknown]
  - Unevaluable event [Not Recovered/Not Resolved]
